FAERS Safety Report 5211926-3 (Version None)
Quarter: 2007Q1

REPORT INFORMATION
  Report Type: 
  Country: None (occurrence: None)
  Receive Date: 20070118
  Receipt Date: 20070103
  Transmission Date: 20070707
  Serious: Yes (Hospitalization, Disabling)
  Sender: FDA-Public Use
  Company Number: 2006SE06945

PATIENT
  Age: 66 Year
  Sex: Female
  Weight: 54 kg

DRUGS (3)
  1. MARCAINE [Suspect]
     Indication: SURGERY
     Route: 037
     Dates: start: 20061027, end: 20061027
  2. CONCOR [Concomitant]
     Indication: HYPERTONIA
     Route: 048
     Dates: end: 20061026
  3. BERLIPRIL [Concomitant]
     Indication: HYPERTONIA
     Route: 048
     Dates: end: 20061026

REACTIONS (2)
  - DYSPNOEA [None]
  - PARAPLEGIA [None]
